FAERS Safety Report 10166361 (Version 2)
Quarter: 2015Q1

REPORT INFORMATION
  Report Type: Report from Study
  Country: FR (occurrence: FR)
  Receive Date: 20140512
  Receipt Date: 20150326
  Transmission Date: 20150720
  Serious: Yes (Hospitalization)
  Sender: FDA-Public Use
  Company Number: FR-ROCHE-1395559

PATIENT
  Age: 57 Year
  Sex: Male

DRUGS (7)
  1. RITUXIMAB [Suspect]
     Active Substance: RITUXIMAB
     Indication: RHEUMATOID ARTHRITIS
     Route: 065
     Dates: start: 20070626
  2. RITUXIMAB [Suspect]
     Active Substance: RITUXIMAB
     Route: 065
     Dates: start: 20080115
  3. CORTANCYL [Concomitant]
     Active Substance: PREDNISONE
     Route: 065
  4. RITUXIMAB [Suspect]
     Active Substance: RITUXIMAB
     Route: 065
     Dates: start: 20080129
  5. RITUXIMAB [Suspect]
     Active Substance: RITUXIMAB
     Route: 065
     Dates: start: 20070710
  6. CYCLOSPORINE. [Concomitant]
     Active Substance: CYCLOSPORINE
     Route: 065
     Dates: start: 20110920
  7. METHOTREXATE [Concomitant]
     Active Substance: METHOTREXATE
     Route: 065

REACTIONS (9)
  - Suicide attempt [Not Recovered/Not Resolved]
  - Hepatic cirrhosis [Not Recovered/Not Resolved]
  - Depression [Unknown]
  - Asthenia [Unknown]
  - Pleurisy [Not Recovered/Not Resolved]
  - Chronic sinusitis [Recovered/Resolved]
  - Renal failure [Recovered/Resolved with Sequelae]
  - Pulmonary fibrosis [Not Recovered/Not Resolved]
  - Phlebitis [Recovered/Resolved]

NARRATIVE: CASE EVENT DATE: 200811
